FAERS Safety Report 8100695-5 (Version None)
Quarter: 2012Q1

REPORT INFORMATION
  Report Type: 
  Country: None (occurrence: None)
  Receive Date: 20120129
  Receipt Date: 20111107
  Transmission Date: 20120608
  Serious: No
  Sender: FDA-Public Use
  Company Number: US-ABBOTT-11P-163-0871933-00

PATIENT
  Age: 47 Year
  Sex: Female

DRUGS (5)
  1. HUMIRA [Suspect]
     Indication: PSORIASIS
     Dates: start: 20100501
  2. MIDRIN [Concomitant]
     Indication: MIGRAINE
  3. NABUMETONE [Concomitant]
     Indication: ARTHRITIS
  4. CELEBREX [Concomitant]
     Indication: ARTHRITIS
  5. OXYBUTYNIN [Concomitant]
     Indication: HYPERTONIC BLADDER

REACTIONS (1)
  - DRUG EFFECT DECREASED [None]
